FAERS Safety Report 25955343 (Version 1)
Quarter: 2025Q4

REPORT INFORMATION
  Report Type: Report from Study
  Country: CN (occurrence: CN)
  Receive Date: 20251024
  Receipt Date: 20251024
  Transmission Date: 20260118
  Serious: Yes (Life-Threatening, Hospitalization, Other)
  Sender: IPSEN BIOPHARMACEUTICALS, INC.
  Company Number: CN-SERVIER-S23007962

PATIENT
  Age: 65 Year
  Sex: Male
  Weight: 57 kg

DRUGS (12)
  1. ONIVYDE [Suspect]
     Active Substance: IRINOTECAN HYDROCHLORIDE
     Indication: Pancreatic carcinoma
     Dosage: 126 MG, ONE DOSE
     Route: 041
     Dates: start: 20230511, end: 20230511
  2. IRINOTECAN HYDROCHLORIDE [Suspect]
     Active Substance: IRINOTECAN HYDROCHLORIDE
     Indication: Pancreatic carcinoma
     Dosage: 126 G, UNK
     Route: 041
     Dates: start: 20230602, end: 20230713
  3. LEUCOVORIN CALCIUM [Suspect]
     Active Substance: LEUCOVORIN CALCIUM
     Indication: Pancreatic carcinoma
     Dosage: 720 MG, UNK
     Route: 041
     Dates: start: 20230511, end: 20230713
  4. FLUOROURACIL [Suspect]
     Active Substance: FLUOROURACIL
     Indication: Pancreatic carcinoma
     Dosage: 4320 MG, PUMPED AT 6 ML/H
     Route: 041
     Dates: start: 20230511, end: 20230713
  5. PEGYLATED RECOMBINANT HUMAN GRANULOCYTE COLONY STIMULATING FACTOR [Concomitant]
     Indication: Prophylaxis
     Dosage: 3 MG, QD
     Dates: start: 20230605, end: 20230702
  6. IMIPENEM AND CILASTATIN [Concomitant]
     Active Substance: CILASTATIN SODIUM\IMIPENEM
     Indication: Antiinflammatory therapy
     Dosage: 1 G, TID
     Route: 041
     Dates: start: 20230711, end: 20230715
  7. POTASSIUM CHLORIDE [Concomitant]
     Active Substance: POTASSIUM CHLORIDE
     Indication: Mineral supplementation
     Dosage: 15 ML, QD
     Dates: start: 20230711, end: 20230717
  8. FAT EMULSION NOS [Concomitant]
     Active Substance: EGG PHOSPHOLIPIDS\SAFFLOWER OIL\SOYBEAN OIL
     Indication: Nutritional supplementation
     Dosage: 250 ML, QD
     Dates: start: 20230711, end: 20230715
  9. ALBUMIN HUMAN [Concomitant]
     Active Substance: ALBUMIN HUMAN
     Indication: Hypoalbuminaemia
     Dosage: 10 G, QD
     Route: 041
     Dates: start: 20230711, end: 20230716
  10. NADROPARIN [Concomitant]
     Active Substance: NADROPARIN
     Indication: Thrombosis prophylaxis
     Dosage: 4100 UNK
     Dates: start: 20230711, end: 20230711
  11. ROXATIDINE [Concomitant]
     Active Substance: ROXATIDINE
     Indication: Prophylaxis
     Dosage: 75 MG, QD
     Dates: start: 20230711, end: 20230711
  12. LOPERAMIDE HYDROCHLORIDE [Concomitant]
     Active Substance: LOPERAMIDE HYDROCHLORIDE
     Indication: Antidiarrhoeal supportive care
     Dosage: 2 MG, TID
     Dates: start: 20230711, end: 20230717

REACTIONS (5)
  - Hypotension [Recovered/Resolved]
  - Cardiac arrest [Recovered/Resolved]
  - White blood cell count decreased [Recovered/Resolved]
  - Neutrophil count decreased [Recovered/Resolved]
  - Platelet count decreased [Recovered/Resolved]

NARRATIVE: CASE EVENT DATE: 20230709
